FAERS Safety Report 11593273 (Version 1)
Quarter: 2015Q4

REPORT INFORMATION
  Report Type: Spontaneous
  Country: US (occurrence: US)
  Receive Date: 20151005
  Receipt Date: 20151005
  Transmission Date: 20160304
  Serious: Yes (Life-Threatening)
  Sender: FDA-Public Use
  Company Number: US-PFIZER INC-2015328143

PATIENT
  Age: 71 Year
  Sex: Male

DRUGS (2)
  1. SIROLIMUS. [Suspect]
     Active Substance: SIROLIMUS
     Indication: TRANSPLANT REJECTION
     Dosage: 2 MG, DAILY
  2. CISPLATIN. [Suspect]
     Active Substance: CISPLATIN
     Dosage: 40 MG/M2, WEEKLY

REACTIONS (5)
  - Off label use [Unknown]
  - Mucosal inflammation [Unknown]
  - Oesophagitis [Unknown]
  - Drug level increased [Unknown]
  - Radiation sickness syndrome [Unknown]
